FAERS Safety Report 6525788-5 (Version None)
Quarter: 2010Q1

REPORT INFORMATION
  Report Type: 
  Country: None (occurrence: None)
  Receive Date: 20100104
  Receipt Date: 20091231
  Transmission Date: 20100710
  Serious: Yes (Other)
  Sender: FDA-Public Use
  Company Number: A0834672A

PATIENT
  Sex: Female

DRUGS (3)
  1. TYKERB [Suspect]
     Indication: DRUG USE FOR UNKNOWN INDICATION
     Dosage: 5TAB PER DAY
     Route: 048
     Dates: start: 20091201
  2. XELODA [Concomitant]
     Indication: DRUG USE FOR UNKNOWN INDICATION
     Route: 048
  3. COUMADIN [Concomitant]

REACTIONS (12)
  - DIARRHOEA [None]
  - ERYTHEMA [None]
  - FALL [None]
  - HEAD INJURY [None]
  - LACRIMATION INCREASED [None]
  - LOSS OF CONSCIOUSNESS [None]
  - NAIL BED BLEEDING [None]
  - OEDEMA PERIPHERAL [None]
  - ONYCHOMADESIS [None]
  - PAIN IN EXTREMITY [None]
  - SCAB [None]
  - SKIN DISCOLOURATION [None]
